FAERS Safety Report 10795268 (Version 1)
Quarter: 2015Q1

REPORT INFORMATION
  Report Type: Spontaneous
  Country: US (occurrence: US)
  Receive Date: 20150214
  Receipt Date: 20150214
  Transmission Date: 20150721
  Serious: No
  Sender: FDA-Public Use
  Company Number: US-GLAXOSMITHKLINE-A1079229A

PATIENT

DRUGS (4)
  1. FLUTICASONE NASAL SPRAY [Concomitant]
     Active Substance: FLUTICASONE\FLUTICASONE PROPIONATE
     Route: 045
  2. INHALER [Concomitant]
     Active Substance: UNSPECIFIED INGREDIENT
  3. FLOVENT [Suspect]
     Active Substance: FLUTICASONE PROPIONATE
     Indication: ASTHMA
     Dosage: INH 110MCG
     Dates: start: 2012
  4. SEREVENT [Concomitant]
     Active Substance: SALMETEROL XINAFOATE

REACTIONS (4)
  - Anal candidiasis [Unknown]
  - Oral candidiasis [Recovered/Resolved]
  - Skin candida [Unknown]
  - Aphonia [Unknown]
